FAERS Safety Report 7270830-X (Version None)
Quarter: 2011Q1

REPORT INFORMATION
  Report Type: 
  Country: None (occurrence: None)
  Receive Date: 20110125
  Receipt Date: 20110125
  Transmission Date: 20110831
  Serious: Yes (Hospitalization)
  Sender: FDA-Public Use
  Company Number: None

PATIENT
  Age: 57 Year
  Sex: Male

DRUGS (1)
  1. AVELOX [Suspect]
     Indication: PNEUMONIA
     Dosage: IV (1 DOSE)
     Route: 042
     Dates: start: 20110120, end: 20110120

REACTIONS (5)
  - LIP SWELLING [None]
  - DIZZINESS [None]
  - BLOOD PRESSURE SYSTOLIC DECREASED [None]
  - INFUSION RELATED REACTION [None]
  - EYE PRURITUS [None]
